FAERS Safety Report 6578753-6 (Version None)
Quarter: 2010Q1

REPORT INFORMATION
  Report Type: 
  Country: None (occurrence: None)
  Receive Date: 20100202
  Receipt Date: 20100120
  Transmission Date: 20100710
  Serious: Yes (Other)
  Sender: FDA-Public Use
  Company Number: 2009AP005218

PATIENT
  Age: 61 Year
  Sex: Male

DRUGS (4)
  1. DESMOPRESSIN ACETATE [Suspect]
     Indication: INCONTINENCE
     Dosage: 3 SPR; NAS_SPRAY; NAS;HS
     Route: 045
     Dates: start: 20080105, end: 20091217
  2. OXYBUTYNIN CHLORIDE [Concomitant]
  3. TAMSULOSIN HCL [Concomitant]
  4. ZOPICLONE (ZOPICLONE) [Concomitant]

REACTIONS (2)
  - BLOOD POTASSIUM ABNORMAL [None]
  - BLOOD SODIUM ABNORMAL [None]
